FAERS Safety Report 7575333-0 (Version None)
Quarter: 2011Q2

REPORT INFORMATION
  Report Type: 
  Country: None (occurrence: None)
  Receive Date: 20110627
  Receipt Date: 20110624
  Transmission Date: 20111010
  Serious: Yes (Hospitalization)
  Sender: FDA-Public Use
  Company Number: FR-ABBOTT-11P-056-0730661-00

PATIENT
  Age: 69 Year
  Sex: Male

DRUGS (2)
  1. DEPAKENE [Suspect]
     Indication: EPILEPSY
     Dosage: DAILY, EXTENDED RELEASE
     Route: 048
     Dates: start: 20010101
  2. TRAMADOL HCL [Suspect]
     Indication: PAIN
     Route: 048
     Dates: start: 20110214, end: 20110215

REACTIONS (3)
  - FALL [None]
  - CONFUSIONAL STATE [None]
  - DISORIENTATION [None]
